FAERS Safety Report 9818900 (Version 1)
Quarter: 2014Q1

REPORT INFORMATION
  Report Type: Spontaneous
  Country: US (occurrence: None)
  Receive Date: 20140114
  Receipt Date: 20140114
  Transmission Date: 20141002
  Serious: No
  Sender: FDA-Public Use
  Company Number: None

PATIENT
  Age: 36 Year
  Sex: Female

DRUGS (12)
  1. OLANZAPINE [Suspect]
     Indication: BIPOLAR DISORDER
     Route: 030
     Dates: start: 20131219, end: 20140113
  2. OLANZAPINE [Suspect]
     Indication: AGITATION
     Route: 030
     Dates: start: 20131219, end: 20140113
  3. OLANZAPINE [Suspect]
     Route: 030
     Dates: start: 20131219, end: 20140113
  4. ACETAMINOPHEN [Concomitant]
  5. MAALOX [Concomitant]
  6. DIPHENHYDRAMINE [Concomitant]
  7. HALOPERIDOL [Concomitant]
  8. LITHIUM [Concomitant]
  9. LORAZEPAM [Concomitant]
  10. OLANZAPINE [Concomitant]
  11. RISPERIDONE [Concomitant]
  12. RISPERDAL CONSTA [Concomitant]

REACTIONS (3)
  - Drug ineffective [None]
  - Drug effect decreased [None]
  - Product quality issue [None]
